FAERS Safety Report 5467029-6 (Version None)
Quarter: 2007Q3

REPORT INFORMATION
  Report Type: 
  Country: None (occurrence: None)
  Receive Date: 20070925
  Receipt Date: 20070918
  Transmission Date: 20080115
  Serious: Yes (Other)
  Sender: FDA-Public Use
  Company Number: A0683615A

PATIENT
  Age: 51 Year
  Sex: Female

DRUGS (15)
  1. AVANDIA [Suspect]
     Indication: DRUG USE FOR UNKNOWN INDICATION
     Dosage: 4MG TWICE PER DAY
  2. DIABETA [Concomitant]
  3. DIOVAN [Concomitant]
  4. HYDROCHLOROTHIAZIDE [Concomitant]
  5. LOSEC [Concomitant]
  6. VITAMIN CAP [Concomitant]
  7. OMEGA-3 [Concomitant]
  8. OXYCODONE HCL [Concomitant]
  9. PERCODAN [Concomitant]
  10. PROLOPA [Concomitant]
  11. PROZAC [Concomitant]
  12. SYNTHROID [Concomitant]
  13. VOLTAREN [Concomitant]
  14. WELLBUTRIN [Concomitant]
  15. ZOLOFT [Concomitant]

REACTIONS (3)
  - CARDIAC FAILURE CONGESTIVE [None]
  - DYSPNOEA [None]
  - OEDEMA PERIPHERAL [None]
